FAERS Safety Report 5373484-2 (Version None)
Quarter: 2007Q2

REPORT INFORMATION
  Report Type: 
  Country: None (occurrence: None)
  Receive Date: 20070628
  Receipt Date: 20070615
  Transmission Date: 20071010
  Serious: Yes (Hospitalization)
  Sender: FDA-Public Use
  Company Number: FR-AMGEN-US212777

PATIENT
  Sex: Female
  Weight: 80 kg

DRUGS (18)
  1. ENBREL [Suspect]
     Indication: RHEUMATOID ARTHRITIS
     Route: 058
     Dates: start: 20040210, end: 20060301
  2. ENBREL [Suspect]
     Route: 058
     Dates: start: 20060301, end: 20070213
  3. CORTANCYL [Suspect]
     Indication: RHEUMATOID ARTHRITIS
     Route: 048
     Dates: start: 20050101, end: 20070201
  4. CORTANCYL [Suspect]
     Route: 048
     Dates: start: 20070201
  5. LEVOTHYROXINE SODIUM [Concomitant]
     Route: 048
     Dates: end: 20070226
  6. LEVOTHYROXINE SODIUM [Concomitant]
     Route: 048
     Dates: start: 20070227
  7. LOXEN [Concomitant]
     Route: 048
  8. INDOCID [Concomitant]
     Indication: RHEUMATOID ARTHRITIS
     Dosage: 125 MG; FREQUENCY UNSPEC.
     Route: 048
     Dates: start: 20061220, end: 20070101
  9. OMEPRAZOLE [Concomitant]
     Dosage: 10 MG; FREQUENCY UNSPEC.
     Route: 048
  10. KLIPAL [Concomitant]
     Dosage: 300 MG PARACETAMOL/25 MG CODEINE PHOSPHATE HEMIHYDRATE
     Route: 048
     Dates: start: 20040101, end: 20070101
  11. DIAMOX [Concomitant]
     Dosage: UNKNOWN
  12. KALEORID [Concomitant]
     Dosage: UNKNOWN
     Route: 048
  13. DEPAMIDE [Concomitant]
     Dosage: UNKNOWN
     Route: 048
  14. FLUOXETINE [Concomitant]
     Dosage: UNKNOWN
     Route: 048
  15. LYSANXIA [Concomitant]
     Dosage: UNKNOWN
     Route: 048
  16. TANAKAN [Concomitant]
     Dosage: UNKNOWN
     Route: 048
  17. METEOSPASMYL [Concomitant]
     Dosage: UNKNOWN
     Route: 048
  18. ZYMAFLUOR [Concomitant]
     Dosage: UNKNOWN
     Route: 048

REACTIONS (11)
  - ACUTE RESPIRATORY DISTRESS SYNDROME [None]
  - BALANCE DISORDER [None]
  - CONDITION AGGRAVATED [None]
  - FALL [None]
  - INTENTION TREMOR [None]
  - MUSCULAR WEAKNESS [None]
  - NYSTAGMUS [None]
  - PNEUMOCOCCAL SEPSIS [None]
  - PNEUMONIA PNEUMOCOCCAL [None]
  - RHEUMATOID ARTHRITIS [None]
  - RIB FRACTURE [None]
